FAERS Safety Report 4995762-9 (Version None)
Quarter: 2006Q1

REPORT INFORMATION
  Report Type: 
  Country: None (occurrence: None)
  Receive Date: 20060315
  Receipt Date: 20060113
  Transmission Date: 20060701
  Serious: Yes (Other)
  Sender: FDA-Public Use
  Company Number: 432359

PATIENT
  Age: 59 Year
  Sex: Female
  Weight: 58.1 kg

DRUGS (6)
  1. BONIVA [Suspect]
     Indication: OSTEOPOROSIS
     Dosage: 150 MG   1 PER MONTH  ORAL
     Route: 048
     Dates: start: 20050615
  2. FORTEO [Concomitant]
  3. VITAMIN SUPPLEMENT (VITAMIN NOS) [Concomitant]
  4. ESTROGEN (ESTROGENS NOS) [Concomitant]
  5. CALCIUM SUPPLEMENT (CALCIUM) [Concomitant]
  6. FOLIC ACID [Concomitant]

REACTIONS (1)
  - GASTRIC ULCER [None]
